FAERS Safety Report 16894676 (Version 1)
Quarter: 2019Q4

REPORT INFORMATION
  Report Type: Spontaneous
  Country: US (occurrence: US)
  Receive Date: 20191008
  Receipt Date: 20191008
  Transmission Date: 20200122
  Serious: No
  Sender: FDA-Public Use
  Company Number: US-INDIVIOR US-INDV-118953-2019

PATIENT
  Age: 38 Year
  Sex: Female

DRUGS (5)
  1. MIRTAZAPINE. [Concomitant]
     Active Substance: MIRTAZAPINE
     Indication: PRODUCT USED FOR UNKNOWN INDICATION
     Dosage: UNK
     Route: 065
  2. SUBOXONE [Suspect]
     Active Substance: BUPRENORPHINE HYDROCHLORIDE\NALOXONE HYDROCHLORIDE
     Indication: DRUG DEPENDENCE
     Dosage: 8MG, PER DAY
     Route: 060
     Dates: start: 201902
  3. SUBOXONE [Suspect]
     Active Substance: BUPRENORPHINE HYDROCHLORIDE\NALOXONE HYDROCHLORIDE
     Indication: DRUG DEPENDENCE
     Dosage: 12MG, PER DAY
     Route: 060
     Dates: start: 201902
  4. CLONIDINE. [Concomitant]
     Active Substance: CLONIDINE
     Indication: ANXIETY
     Dosage: UNK
     Route: 065
  5. EFFEXOR [Concomitant]
     Active Substance: VENLAFAXINE HYDROCHLORIDE
     Indication: PRODUCT USED FOR UNKNOWN INDICATION
     Dosage: UNK
     Route: 065

REACTIONS (25)
  - Feeling abnormal [Not Recovered/Not Resolved]
  - Stomatitis [Not Recovered/Not Resolved]
  - Nipple pain [Not Recovered/Not Resolved]
  - Pruritus [Not Recovered/Not Resolved]
  - Oral mucosal erythema [Not Recovered/Not Resolved]
  - Muscle spasms [Not Recovered/Not Resolved]
  - Ear pain [Not Recovered/Not Resolved]
  - Vitreous floaters [Not Recovered/Not Resolved]
  - Pain [Not Recovered/Not Resolved]
  - Swelling face [Not Recovered/Not Resolved]
  - Rash [Not Recovered/Not Resolved]
  - Oral candidiasis [Not Recovered/Not Resolved]
  - Vision blurred [Not Recovered/Not Resolved]
  - Oedema peripheral [Not Recovered/Not Resolved]
  - Paraesthesia [Not Recovered/Not Resolved]
  - Drug withdrawal syndrome [Not Recovered/Not Resolved]
  - Flushing [Not Recovered/Not Resolved]
  - Fatigue [Not Recovered/Not Resolved]
  - Tremor [Not Recovered/Not Resolved]
  - Dyskinesia [Not Recovered/Not Resolved]
  - Crying [Not Recovered/Not Resolved]
  - Feeling hot [Not Recovered/Not Resolved]
  - Swollen tongue [Not Recovered/Not Resolved]
  - Mouth swelling [Not Recovered/Not Resolved]
  - Headache [Not Recovered/Not Resolved]

NARRATIVE: CASE EVENT DATE: 201903
